FAERS Safety Report 14557078 (Version 3)
Quarter: 2018Q1

REPORT INFORMATION
  Report Type: Spontaneous
  Country: US (occurrence: US)
  Receive Date: 20180221
  Receipt Date: 20180223
  Transmission Date: 20180509
  Serious: Yes (Other)
  Sender: FDA-Public Use
  Company Number: US-BAYER-2018-034335

PATIENT
  Age: 34 Year
  Sex: Female

DRUGS (1)
  1. GADAVIST [Suspect]
     Active Substance: GADOBUTROL
     Indication: NUCLEAR MAGNETIC RESONANCE IMAGING BREAST
     Dosage: 6.7 ML, ONCE
     Route: 042
     Dates: start: 20170219, end: 20170219

REACTIONS (12)
  - Urticaria [Recovering/Resolving]
  - Piloerection [Recovering/Resolving]
  - Dyspnoea [Recovering/Resolving]
  - Dizziness [Recovering/Resolving]
  - Muscle tightness [Recovering/Resolving]
  - Visual brightness [Recovering/Resolving]
  - Erythema [Recovering/Resolving]
  - Pruritus [Recovering/Resolving]
  - Ear swelling [Recovering/Resolving]
  - Contrast media allergy [Recovering/Resolving]
  - Ocular hyperaemia [Recovering/Resolving]
  - Visual impairment [Recovering/Resolving]

NARRATIVE: CASE EVENT DATE: 20170219
